FAERS Safety Report 26178060 (Version 2)
Quarter: 2025Q4

REPORT INFORMATION
  Report Type: Spontaneous
  Country: US (occurrence: US)
  Receive Date: 20251219
  Receipt Date: 20251223
  Transmission Date: 20260118
  Serious: No
  Sender: ABBVIE
  Company Number: US-ABBVIE-6596817

PATIENT
  Age: 67 Year
  Sex: Male

DRUGS (2)
  1. VYALEV [Suspect]
     Active Substance: FOSCARBIDOPA\FOSLEVODOPA
     Indication: Parkinson^s disease
     Dosage: 24 HR INFUSION
     Route: 058
     Dates: start: 2025
  2. VYALEV [Suspect]
     Active Substance: FOSCARBIDOPA\FOSLEVODOPA
     Dosage: 24 HR INFUSION
     Route: 058
     Dates: start: 20251120, end: 2025

REACTIONS (7)
  - Cold sweat [Recovering/Resolving]
  - Catheter site pallor [Recovered/Resolved]
  - Anxiety [Recovering/Resolving]
  - Catheter site pain [Recovered/Resolved]
  - Catheter site related reaction [Not Recovered/Not Resolved]
  - Bradykinesia [Recovering/Resolving]
  - Catheter site discharge [Unknown]

NARRATIVE: CASE EVENT DATE: 20250101
